FAERS Safety Report 24654763 (Version 1)
Quarter: 2024Q4

REPORT INFORMATION
  Report Type: Spontaneous
  Country: CN (occurrence: CN)
  Receive Date: 20241122
  Receipt Date: 20241122
  Transmission Date: 20250115
  Serious: Yes (Hospitalization)
  Sender: AMERICAN REGENT
  Company Number: CN-AMERICAN REGENT INC-2024004363

PATIENT
  Age: 50 Year
  Sex: Female

DRUGS (1)
  1. FERINJECT [Suspect]
     Active Substance: FERRIC CARBOXYMALTOSE
     Indication: Anaemia
     Dosage: 0.9% SODIUM CHLORIDE INJECTION 250ML (LOT NUMBER: P24061641) (1000 MG,1 IN 1 D)
     Dates: start: 20241105, end: 20241105

REACTIONS (3)
  - Oedema [Recovering/Resolving]
  - Pruritus [Recovering/Resolving]
  - Heart rate increased [Recovering/Resolving]

NARRATIVE: CASE EVENT DATE: 20241105
